FAERS Safety Report 13737612 (Version 1)
Quarter: 2017Q3

REPORT INFORMATION
  Report Type: Spontaneous
  Country: US (occurrence: US)
  Receive Date: 20170710
  Receipt Date: 20170710
  Transmission Date: 20171127
  Serious: No
  Sender: FDA-Public Use
  Company Number: US-SAOL THERAPEUTICS-2016SAO00178

PATIENT
  Sex: Female

DRUGS (5)
  1. BUPIVACAINE. [Suspect]
     Active Substance: BUPIVACAINE
     Route: 037
  2. BACLOFEN. [Suspect]
     Active Substance: BACLOFEN
     Indication: MULTIPLE SCLEROSIS
     Dosage: UNK
     Route: 037
  3. MARCAINE [Suspect]
     Active Substance: BUPIVACAINE HYDROCHLORIDE
     Route: 037
  4. FENTANYL. [Suspect]
     Active Substance: FENTANYL
     Route: 037
  5. BACLOFEN. [Suspect]
     Active Substance: BACLOFEN
     Indication: MUSCLE SPASTICITY
     Dosage: UNK
     Route: 037
     Dates: end: 201610

REACTIONS (4)
  - Muscle spasticity [Recovered/Resolved]
  - Drug dose omission [Unknown]
  - Device alarm issue [Unknown]
  - Tinea infection [Recovered/Resolved]

NARRATIVE: CASE EVENT DATE: 2003
